FAERS Safety Report 19018688 (Version 8)
Quarter: 2022Q3

REPORT INFORMATION
  Report Type: Spontaneous
  Country: US (occurrence: US)
  Receive Date: 20210317
  Receipt Date: 20220920
  Transmission Date: 20221027
  Serious: Yes (Life-Threatening, Hospitalization, Disabling, Other)
  Sender: FDA-Public Use
  Company Number: US-GILEAD-2021-0520118

PATIENT
  Age: 33 Year
  Sex: Female

DRUGS (1)
  1. HARVONI [Suspect]
     Active Substance: LEDIPASVIR\SOFOSBUVIR
     Indication: Chronic hepatitis C
     Dosage: 1 DOSAGE FORM, QD
     Route: 048
     Dates: start: 2016, end: 201702

REACTIONS (19)
  - Pulmonary embolism [Recovered/Resolved]
  - Cerebrovascular accident [Recovered/Resolved with Sequelae]
  - Coma [Recovered/Resolved with Sequelae]
  - Pneumothorax [Unknown]
  - Brain injury [Unknown]
  - Respiratory failure [Unknown]
  - Organ failure [Unknown]
  - Dyspnoea [Unknown]
  - Disability [Not Recovered/Not Resolved]
  - Overdose [Unknown]
  - Product use issue [Unknown]
  - Immune system disorder [Unknown]
  - Intentional dose omission [Recovered/Resolved]
  - General physical health deterioration [Unknown]
  - Mobility decreased [Unknown]
  - Dysgraphia [Unknown]
  - Dysphagia [Unknown]
  - Emotional disorder [Unknown]
  - Anaemia [Unknown]

NARRATIVE: CASE EVENT DATE: 20160101
